FAERS Safety Report 13797035 (Version 1)
Quarter: 2017Q3

REPORT INFORMATION
  Report Type: Report from Study
  Country: BR (occurrence: BR)
  Receive Date: 20170727
  Receipt Date: 20170727
  Transmission Date: 20171127
  Serious: Yes (Other)
  Sender: FDA-Public Use
  Company Number: BR-HETERO LABS LTD-2023830

PATIENT
  Age: 1 Day
  Sex: Female
  Weight: 3.73 kg

DRUGS (4)
  1. EFAVIRENZ [Suspect]
     Active Substance: EFAVIRENZ
     Indication: HIV INFECTION
     Route: 064
     Dates: start: 20170417
  2. TDP VACCINE [Concomitant]
     Route: 064
  3. COMBIVIR [Concomitant]
     Active Substance: LAMIVUDINE\ZIDOVUDINE
     Route: 064
     Dates: start: 20170417
  4. INFLUENZA VACCINE [Concomitant]
     Active Substance: INFLUENZA VIRUS VACCINE
     Route: 064

REACTIONS (3)
  - Foetal exposure during pregnancy [Unknown]
  - Macrosomia [Unknown]
  - Congenital pyelocaliectasis [Not Recovered/Not Resolved]

NARRATIVE: CASE EVENT DATE: 20170706
